FAERS Safety Report 6894473-2 (Version None)
Quarter: 2010Q3

REPORT INFORMATION
  Report Type: 
  Country: None (occurrence: None)
  Receive Date: 20100802
  Receipt Date: 20100728
  Transmission Date: 20110219
  Serious: Yes (Life-Threatening, Hospitalization)
  Sender: FDA-Public Use
  Company Number: JP-SANOFI-AVENTIS-2010SA013703

PATIENT
  Age: 88 Year
  Sex: Female
  Weight: 42.5 kg

DRUGS (5)
  1. PLAVIX [Suspect]
     Route: 048
     Dates: start: 20091029, end: 20100226
  2. INFLUENZA VACCINE [Suspect]
     Dates: start: 20100128, end: 20100128
  3. BLOPRESS [Concomitant]
     Indication: HYPERTENSION
     Route: 048
     Dates: start: 20091029, end: 20100226
  4. AMLODIPINE [Concomitant]
     Indication: HYPERTENSION
     Route: 048
     Dates: start: 20091029, end: 20100226
  5. BEZAFIBRATE [Concomitant]
     Indication: HYPERLIPIDAEMIA
     Route: 048
     Dates: start: 20091029, end: 20100226

REACTIONS (4)
  - ECZEMA [None]
  - EFFUSION [None]
  - MALAISE [None]
  - OCULOMUCOCUTANEOUS SYNDROME [None]
